FAERS Safety Report 12352628 (Version 1)
Quarter: 2016Q2

REPORT INFORMATION
  Report Type: Report from Study
  Country: US (occurrence: US)
  Receive Date: 20160510
  Receipt Date: 20160510
  Transmission Date: 20160815
  Serious: Yes (Other)
  Sender: FDA-Public Use
  Company Number: US-BIOGEN-2015BI154386

PATIENT
  Age: 61 Year
  Sex: Male

DRUGS (1)
  1. TYSABRI [Suspect]
     Active Substance: NATALIZUMAB
     Indication: MULTIPLE SCLEROSIS
     Route: 042
     Dates: start: 20100715

REACTIONS (9)
  - Road traffic accident [Recovered/Resolved]
  - Limb injury [Unknown]
  - Musculoskeletal disorder [Not Recovered/Not Resolved]
  - Bone operation [Unknown]
  - Foot operation [Not Recovered/Not Resolved]
  - Tendon rupture [Unknown]
  - Injury [Unknown]
  - Muscle twitching [Not Recovered/Not Resolved]
  - Pain in extremity [Not Recovered/Not Resolved]

NARRATIVE: CASE EVENT DATE: 2015
